FAERS Safety Report 8457726-2 (Version None)
Quarter: 2012Q2

REPORT INFORMATION
  Report Type: 
  Country: None (occurrence: None)
  Receive Date: 20120618
  Receipt Date: 20120618
  Transmission Date: 20120825
  Serious: Yes (Other)
  Sender: FDA-Public Use
  Company Number: None

PATIENT
  Age: 56 Year
  Sex: Male
  Weight: 68.4932 kg

DRUGS (1)
  1. ATENOLOL [Suspect]
     Indication: HYPERTENSION
     Dosage: 1 TABLET ONCE A DAY PO
     Route: 048
     Dates: start: 20120611, end: 20120616

REACTIONS (3)
  - BLOOD GLUCOSE INCREASED [None]
  - HEPATIC PAIN [None]
  - HEART RATE DECREASED [None]
